FAERS Safety Report 18811752 (Version 1)
Quarter: 2021Q1

REPORT INFORMATION
  Report Type: Other
  Country: US (occurrence: US)
  Receive Date: 20210129
  Receipt Date: 20210129
  Transmission Date: 20210419
  Serious: Yes (Other)
  Sender: FDA-Public Use
  Company Number: US-INTERCEPT-PM2020002430

PATIENT
  Age: 48 Year
  Sex: Female

DRUGS (3)
  1. OCALIVA [Suspect]
     Active Substance: OBETICHOLIC ACID
     Indication: PRIMARY BILIARY CHOLANGITIS
     Dosage: 5 MILLIGRAM, QD
     Route: 048
     Dates: start: 20200128, end: 2020
  2. OCALIVA [Suspect]
     Active Substance: OBETICHOLIC ACID
     Dosage: UNK
     Route: 048
  3. URSODIOL. [Concomitant]
     Active Substance: URSODIOL
     Dosage: 1200 MILLIGRAM, QD
     Route: 048
     Dates: start: 2016

REACTIONS (8)
  - Albumin globulin ratio abnormal [Unknown]
  - Aspartate aminotransferase abnormal [Unknown]
  - Blood alkaline phosphatase abnormal [Unknown]
  - Chest pain [Unknown]
  - Blood albumin abnormal [Unknown]
  - Wrong technique in product usage process [Unknown]
  - Portal fibrosis [Unknown]
  - Alanine aminotransferase abnormal [Unknown]

NARRATIVE: CASE EVENT DATE: 20201113
